FAERS Safety Report 6658907-0 (Version None)
Quarter: 2010Q1

REPORT INFORMATION
  Report Type: 
  Country: None (occurrence: None)
  Receive Date: 20100330
  Receipt Date: 20100312
  Transmission Date: 20100710
  Serious: No
  Sender: FDA-Public Use
  Company Number: US-BIOGENIDEC-2010BI008590

PATIENT
  Age: 28 Year
  Sex: Female

DRUGS (2)
  1. TYSABRI [Suspect]
     Indication: MULTIPLE SCLEROSIS
     Route: 042
     Dates: start: 20070418, end: 20070731
  2. TYSABRI [Suspect]
     Route: 042
     Dates: start: 20081017

REACTIONS (4)
  - CENTRAL VENOUS CATHETERISATION [None]
  - CHEST PAIN [None]
  - COUGH [None]
  - PAIN IN EXTREMITY [None]
